FAERS Safety Report 9937366 (Version 1)
Quarter: 2014Q1

REPORT INFORMATION
  Report Type: Spontaneous
  Country: ES (occurrence: ES)
  Receive Date: 20140303
  Receipt Date: 20140303
  Transmission Date: 20141002
  Serious: Yes (Other)
  Sender: FDA-Public Use
  Company Number: ES-009507513-1402ESP012936

PATIENT
  Age: 63 Year
  Sex: Male

DRUGS (10)
  1. PEGINTERFERON ALFA-2B [Suspect]
     Indication: HEPATITIS C
     Dosage: UNK
  2. PEGINTERFERON ALFA-2B [Suspect]
     Dosage: REDUCED TO 135 MCG PER WEEK
  3. RIBAVIRIN [Suspect]
     Indication: HEPATITIS C
     Dosage: 800 MG DAILY
  4. RIBAVIRIN [Suspect]
     Dosage: 600 MG DAILY
  5. TELAPREVIR [Suspect]
     Indication: HEPATITIS C
     Dosage: UNK
  6. AZATHIOPRINE [Concomitant]
     Dosage: 75 MG DAILY
  7. PREDNISONE [Concomitant]
     Dosage: 5 MG DAILY
  8. PREDNISONE [Concomitant]
     Dosage: 10 MG DAILY
  9. CYCLOSPORINE [Concomitant]
     Dosage: 25 MG DAILY
  10. CYCLOSPORINE [Concomitant]
     Dosage: 25 MG, Q12H

REACTIONS (1)
  - Histiocytosis haematophagic [Unknown]
